FAERS Safety Report 8554972-4 (Version None)
Quarter: 2012Q3

REPORT INFORMATION
  Report Type: 
  Country: None (occurrence: None)
  Receive Date: 20120731
  Receipt Date: 20120727
  Transmission Date: 20120928
  Serious: Yes (Hospitalization)
  Sender: FDA-Public Use
  Company Number: CHPA2012US015658

PATIENT
  Sex: Female

DRUGS (2)
  1. PREVACID 24 HR [Suspect]
     Indication: GASTROOESOPHAGEAL REFLUX DISEASE
     Dosage: UNK, UNK
     Route: 048
  2. PREVACID 24 HR [Suspect]
     Dosage: 15 MG, QD
     Route: 048
     Dates: start: 20120719

REACTIONS (8)
  - WRONG TECHNIQUE IN DRUG USAGE PROCESS [None]
  - INAPPROPRIATE SCHEDULE OF DRUG ADMINISTRATION [None]
  - DISEASE RECURRENCE [None]
  - OFF LABEL USE [None]
  - ABDOMINAL DISTENSION [None]
  - FLATULENCE [None]
  - ERUCTATION [None]
  - FEELING ABNORMAL [None]
